FAERS Safety Report 18735279 (Version 3)
Quarter: 2021Q4

REPORT INFORMATION
  Report Type: Report from Study
  Country: AU (occurrence: AU)
  Receive Date: 20210113
  Receipt Date: 20211224
  Transmission Date: 20220303
  Serious: Yes (Hospitalization, Other)
  Sender: FDA-Public Use
  Company Number: AU-BRISTOL-MYERS SQUIBB COMPANY-BMS-2021-001675

PATIENT
  Age: 73 Year
  Sex: Female
  Weight: 110 kg

DRUGS (2)
  1. NIVOLUMAB [Suspect]
     Active Substance: NIVOLUMAB
     Indication: Glioblastoma multiforme
     Dosage: 240 MILLIGRAM ON DAY 1 AND DAY 15 OF A 28 DAY CYCLE
     Route: 042
     Dates: start: 20201110, end: 20201208
  2. TEMOZOLOMIDE [Concomitant]
     Active Substance: TEMOZOLOMIDE
     Indication: Glioblastoma multiforme
     Dosage: 410MG, D1-5 QWK
     Route: 048
     Dates: start: 20201208

REACTIONS (1)
  - Extraocular muscle paresis [Recovered/Resolved]

NARRATIVE: CASE EVENT DATE: 20201222
